FAERS Safety Report 6550438-1 (Version None)
Quarter: 2010Q1

REPORT INFORMATION
  Report Type: 
  Country: None (occurrence: None)
  Receive Date: 20100125
  Receipt Date: 20100120
  Transmission Date: 20100710
  Serious: Yes (Hospitalization)
  Sender: FDA-Public Use
  Company Number: US-PFIZER INC-2010008131

PATIENT
  Age: 39 Year
  Sex: Female

DRUGS (2)
  1. FLUCONAZOLE [Suspect]
     Indication: MENINGITIS COCCIDIOIDES
     Dosage: UNK
     Route: 048
     Dates: start: 19920801, end: 20040201
  2. FLUCONAZOLE [Suspect]
     Dosage: UNK
     Route: 048
     Dates: start: 20090901, end: 20091001

REACTIONS (2)
  - ALOPECIA [None]
  - PATHOGEN RESISTANCE [None]
